FAERS Safety Report 10575823 (Version 1)
Quarter: 2014Q4

REPORT INFORMATION
  Report Type: Spontaneous
  Country: GB (occurrence: GB)
  Receive Date: 20141111
  Receipt Date: 20141111
  Transmission Date: 20150529
  Serious: Yes (Disabling)
  Sender: FDA-Public Use
  Company Number: GB-009507513-1411GBR004191

PATIENT
  Age: 40 Year
  Sex: Male

DRUGS (2)
  1. EZETROL [Suspect]
     Active Substance: EZETIMIBE
     Indication: BLOOD CHOLESTEROL INCREASED
     Dosage: UNK
  2. EZETROL [Suspect]
     Active Substance: EZETIMIBE
     Dosage: UNK

REACTIONS (16)
  - Quality of life decreased [Unknown]
  - Fatigue [Unknown]
  - Social avoidant behaviour [Unknown]
  - Psychiatric symptom [Unknown]
  - Drug intolerance [Unknown]
  - Drug ineffective [Unknown]
  - Diarrhoea [Unknown]
  - Headache [Unknown]
  - Disturbance in social behaviour [Unknown]
  - Decreased appetite [Unknown]
  - Personality change due to a general medical condition [Unknown]
  - Insomnia [Unknown]
  - Balance disorder [Unknown]
  - Activities of daily living impaired [Unknown]
  - Dizziness [Unknown]
  - Self esteem decreased [Unknown]
